FAERS Safety Report 5847986-6 (Version None)
Quarter: 2008Q3

REPORT INFORMATION
  Report Type: 
  Country: None (occurrence: None)
  Receive Date: 20080818
  Receipt Date: 20080814
  Transmission Date: 20090109
  Serious: Yes (Hospitalization)
  Sender: FDA-Public Use
  Company Number: DE-BAYER-200710150BVD

PATIENT
  Age: 67 Year
  Sex: Male
  Weight: 72 kg

DRUGS (12)
  1. SORAFENIB [Suspect]
     Indication: METASTATIC RENAL CELL CARCINOMA
     Dosage: UNIT DOSE: 400 MG
     Route: 048
     Dates: start: 20060119
  2. DIGIMERCK [Concomitant]
     Route: 048
     Dates: start: 20030101
  3. BELOK ZOK [Concomitant]
     Route: 048
     Dates: start: 19950101
  4. BRONCHORETARD [Concomitant]
     Route: 048
     Dates: start: 20000101
  5. ALLOPURINOL [Concomitant]
     Route: 048
     Dates: start: 20050701
  6. OMEPRAZOLE [Concomitant]
     Route: 048
     Dates: start: 20050801
  7. MORPHINE SULFATE [Concomitant]
     Route: 048
     Dates: start: 20050801
  8. MARCUMAR [Concomitant]
     Route: 048
     Dates: start: 20050801
  9. FOSAMAX [Concomitant]
     Dates: start: 20000101
  10. VIANI FORTE [Concomitant]
     Route: 055
     Dates: start: 20000101
  11. SPIRIVA [Concomitant]
     Route: 055
     Dates: start: 20000101
  12. BERODUAL [Concomitant]
     Route: 055
     Dates: start: 20000101

REACTIONS (1)
  - GINGIVITIS [None]
